FAERS Safety Report 6024778-9 (Version None)
Quarter: 2008Q4

REPORT INFORMATION
  Report Type: 
  Country: None (occurrence: None)
  Receive Date: 20081231
  Receipt Date: 20081223
  Transmission Date: 20090506
  Serious: Yes (Hospitalization, Disabling)
  Sender: FDA-Public Use
  Company Number: US-BIOGENIDEC-2008BI032416

PATIENT
  Age: 27 Year
  Sex: Female

DRUGS (9)
  1. TYSABRI [Suspect]
     Indication: MULTIPLE SCLEROSIS
     Route: 042
     Dates: start: 20080423, end: 20081021
  2. BACLOFEN [Concomitant]
     Indication: MUSCLE SPASMS
     Route: 048
  3. PERCOCET [Concomitant]
     Route: 048
  4. ZOLPIDEM [Concomitant]
     Route: 048
  5. DUODERM [Concomitant]
     Route: 062
  6. XENADERM [Concomitant]
     Route: 061
  7. MACROBID [Concomitant]
     Indication: NEUROGENIC BLADDER
     Route: 048
     Dates: start: 20081101
  8. INFLUENZA VACCINE [Concomitant]
     Route: 030
  9. PNEUMOCOCCAL VACCINE [Concomitant]
     Route: 030

REACTIONS (2)
  - NEUROMYELITIS OPTICA [None]
  - URINARY TRACT INFECTION [None]
